FAERS Safety Report 9442137 (Version 5)
Quarter: 2013Q3

REPORT INFORMATION
  Report Type: Report from Study
  Country: US (occurrence: US)
  Receive Date: 20130806
  Receipt Date: 20130911
  Transmission Date: 20140515
  Serious: Yes (Death, Life-Threatening, Hospitalization, Other)
  Sender: FDA-Public Use
  Company Number: US-MPIJNJ-2013-05618

PATIENT
  Age: 14 Year
  Sex: Male
  Weight: 59.5 kg

DRUGS (10)
  1. VELCADE [Suspect]
     Indication: B PRECURSOR TYPE ACUTE LEUKAEMIA
     Dosage: 1.3 MG/M2, UNK
     Route: 040
     Dates: start: 20130701, end: 20130712
  2. DOXORUBICIN [Suspect]
     Indication: B PRECURSOR TYPE ACUTE LEUKAEMIA
     Dosage: 60 MG/M2, UNK
     Route: 042
     Dates: start: 20130701, end: 20130702
  3. CYTARABINE [Suspect]
     Indication: B PRECURSOR TYPE ACUTE LEUKAEMIA
     Dosage: 70 MG, UNK
     Route: 037
     Dates: start: 20130701, end: 20130701
  4. METHOTREXATE [Suspect]
     Indication: B PRECURSOR TYPE ACUTE LEUKAEMIA
     Dosage: 15 MG, UNK
     Route: 037
     Dates: start: 20130701, end: 20130716
  5. PREDNISONE [Suspect]
     Indication: B PRECURSOR TYPE ACUTE LEUKAEMIA
     Dosage: 20 MG/M2, BID
     Route: 048
     Dates: start: 20130701, end: 20130717
  6. VINCRISTINE [Suspect]
     Indication: B PRECURSOR TYPE ACUTE LEUKAEMIA
     Dosage: 1.5 MG/M2, UNK
     Route: 040
     Dates: start: 20130701, end: 20130716
  7. ASPARAGINASE [Suspect]
     Indication: B PRECURSOR TYPE ACUTE LEUKAEMIA
     Dosage: UNK
     Dates: start: 20130701, end: 20130717
  8. CONCERTA [Concomitant]
     Indication: ATTENTION DEFICIT/HYPERACTIVITY DISORDER
  9. VYVANSE [Concomitant]
     Indication: ATTENTION DEFICIT/HYPERACTIVITY DISORDER
     Dosage: UNK
  10. VYVANSE [Concomitant]
     Dosage: 70 MG, QD

REACTIONS (14)
  - Respiratory failure [Fatal]
  - Clostridium difficile colitis [Not Recovered/Not Resolved]
  - Hypoxia [Not Recovered/Not Resolved]
  - Acute respiratory distress syndrome [Not Recovered/Not Resolved]
  - Pneumonia staphylococcal [Recovering/Resolving]
  - Mucosal infection [Recovering/Resolving]
  - Sepsis [Recovered/Resolved]
  - Device related infection [Not Recovered/Not Resolved]
  - Stomatitis [Not Recovered/Not Resolved]
  - Lipase increased [Not Recovered/Not Resolved]
  - Acidosis [Not Recovered/Not Resolved]
  - Hyperkalaemia [Not Recovered/Not Resolved]
  - Hypokalaemia [Recovered/Resolved]
  - Pleural effusion [Not Recovered/Not Resolved]
